FAERS Safety Report 15347511 (Version 1)
Quarter: 2018Q3

REPORT INFORMATION
  Report Type: Report from Study
  Country: BR (occurrence: BR)
  Receive Date: 20180904
  Receipt Date: 20180904
  Transmission Date: 20181010
  Serious: Yes (Hospitalization)
  Sender: FDA-Public Use
  Company Number: BR-SA-2018SA233967

PATIENT
  Sex: Female
  Weight: 71 kg

DRUGS (4)
  1. NEBILET [Concomitant]
     Active Substance: NEBIVOLOL
     Dosage: 1 DF, QD/ 1 TABLET IN THE MORNING
     Route: 048
     Dates: start: 201804
  2. INSULIN GLARGINE [Suspect]
     Active Substance: INSULIN GLARGINE
     Indication: DIABETES MELLITUS
     Dosage: 14 IU, UNK
     Route: 058
     Dates: start: 201806
  3. TRAYENTA [Concomitant]
     Active Substance: LINAGLIPTIN
     Dosage: 1 DF, QD/ 1 TABLET IN THE MORNING
     Route: 048
     Dates: start: 201804
  4. METIOCOLIN B12 [ACETYLMETHIONINE;CHOLINE CITRATE;CYANOCOBALAMIN] [Concomitant]
     Indication: VITAMIN SUPPLEMENTATION
     Dosage: 1 DF, UNK
     Route: 048
     Dates: start: 201804

REACTIONS (2)
  - Hyperglycaemia [Recovering/Resolving]
  - Epistaxis [Unknown]
